FAERS Safety Report 8192991-0 (Version None)
Quarter: 2012Q1

REPORT INFORMATION
  Report Type: 
  Country: None (occurrence: None)
  Receive Date: 20120221
  Receipt Date: 20111031
  Transmission Date: 20120608
  Serious: No
  Sender: FDA-Public Use
  Company Number: 044612

PATIENT
  Sex: Female
  Weight: 91.8 kg

DRUGS (1)
  1. LACOSAMIDE [Suspect]
     Indication: EPILEPSY
     Dosage: (15 MG BID ORAL)
     Route: 048
     Dates: start: 20101001

REACTIONS (1)
  - WEIGHT INCREASED [None]
